FAERS Safety Report 6000183-6 (Version None)
Quarter: 2008Q4

REPORT INFORMATION
  Report Type: 
  Country: None (occurrence: None)
  Receive Date: 20081215
  Receipt Date: 20081211
  Transmission Date: 20090506
  Serious: Yes (Other)
  Sender: FDA-Public Use
  Company Number: FR-WYE-G02761108

PATIENT
  Age: 18 Year
  Sex: Female

DRUGS (2)
  1. NORDETTE-21 [Suspect]
     Indication: ORAL CONTRACEPTION
     Route: 048
  2. ADVIL LIQUI-GELS [Suspect]
     Dosage: UNKNOWN
     Route: 048
     Dates: start: 20080101, end: 20081101

REACTIONS (3)
  - DRUG EXPOSURE DURING PREGNANCY [None]
  - DRUG INEFFECTIVE [None]
  - UNINTENDED PREGNANCY [None]
